FAERS Safety Report 25074410 (Version 1)
Quarter: 2025Q1

REPORT INFORMATION
  Report Type: Spontaneous
  Country: FR (occurrence: FR)
  Receive Date: 20250313
  Receipt Date: 20250313
  Transmission Date: 20250408
  Serious: Yes (Other)
  Sender: NOVARTIS
  Company Number: None

PATIENT
  Age: 24 Year
  Sex: Female
  Weight: 74.5 kg

DRUGS (2)
  1. CYCLOSPORINE [Interacting]
     Active Substance: CYCLOSPORINE
     Indication: Enterococcal infection
     Route: 050
     Dates: start: 20250123
  2. DAPTOMYCIN [Interacting]
     Active Substance: DAPTOMYCIN
     Indication: Enterococcal infection
     Route: 042
     Dates: start: 20250124, end: 20250213

REACTIONS (1)
  - Rhabdomyolysis [Recovered/Resolved]

NARRATIVE: CASE EVENT DATE: 20250210
